FAERS Safety Report 8338242-5 (Version None)
Quarter: 2012Q2

REPORT INFORMATION
  Report Type: 
  Country: None (occurrence: None)
  Receive Date: 20120504
  Receipt Date: 20120424
  Transmission Date: 20120825
  Serious: Yes (Hospitalization, Disabling, Other)
  Sender: FDA-Public Use
  Company Number: US-MERCK-1202USA01126

PATIENT
  Age: 56 Year
  Sex: Female

DRUGS (17)
  1. FOSAMAX PLUS D [Suspect]
     Route: 048
     Dates: start: 20090610, end: 20100425
  2. FOSAMAX PLUS D [Suspect]
     Route: 048
     Dates: start: 20100812
  3. FOSAMAX [Suspect]
     Route: 048
     Dates: start: 20050119, end: 20050214
  4. FOSAMAX PLUS D [Suspect]
     Route: 048
     Dates: start: 20060914
  5. BONIVA [Suspect]
     Indication: OSTEOPOROSIS
     Route: 048
     Dates: start: 20080404
  6. BONIVA [Suspect]
     Route: 048
     Dates: start: 20110202
  7. BONIVA [Suspect]
     Route: 048
     Dates: start: 20090427
  8. FOSAMAX PLUS D [Suspect]
     Indication: OSTEOPOROSIS
     Route: 048
     Dates: start: 20060216, end: 20060721
  9. BONIVA [Suspect]
     Route: 048
     Dates: start: 20101014, end: 20101229
  10. FOSAMAX PLUS D [Suspect]
     Route: 065
     Dates: start: 20060818
  11. FOSAMAX PLUS D [Suspect]
     Route: 065
     Dates: start: 20061002, end: 20080306
  12. FOSAMAX PLUS D [Suspect]
     Route: 048
     Dates: start: 20080604
  13. ACTONEL [Suspect]
     Indication: OSTEOPOROSIS
     Route: 048
     Dates: start: 20100505, end: 20100706
  14. ACTONEL [Suspect]
     Route: 065
     Dates: start: 20100101
  15. FOSAMAX [Suspect]
     Indication: OSTEOPOROSIS
     Route: 048
     Dates: start: 19960101
  16. FOSAMAX PLUS D [Suspect]
     Route: 065
     Dates: start: 20060112
  17. [THERAPY UNSPECIFIED] [Concomitant]
     Indication: HYPERTENSION
     Route: 065

REACTIONS (26)
  - ARTHROPATHY [None]
  - ARTHROPOD BITE [None]
  - PULMONARY GRANULOMA [None]
  - LIGAMENT SPRAIN [None]
  - CARDIAC DISORDER [None]
  - COMPRESSION FRACTURE [None]
  - CATARACT [None]
  - DYSPNOEA [None]
  - BURSITIS [None]
  - DYSLIPIDAEMIA [None]
  - BACK PAIN [None]
  - RENAL FAILURE [None]
  - GASTROINTESTINAL DISORDER [None]
  - ARTHRALGIA [None]
  - FOOD POISONING [None]
  - COUGH [None]
  - FIBROMYALGIA [None]
  - RESPIRATORY TRACT CONGESTION [None]
  - UTERINE DISORDER [None]
  - BLOOD CHOLESTEROL INCREASED [None]
  - NERVOUSNESS [None]
  - FEMUR FRACTURE [None]
  - LOW TURNOVER OSTEOPATHY [None]
  - DIVERTICULITIS [None]
  - GALLBLADDER DISORDER [None]
  - ELECTROCARDIOGRAM ST SEGMENT DEPRESSION [None]
